FAERS Safety Report 5009194-0 (Version None)
Quarter: 2006Q2

REPORT INFORMATION
  Report Type: 
  Country: None (occurrence: None)
  Receive Date: 20060519
  Receipt Date: 20060504
  Transmission Date: 20061013
  Serious: Yes (Other)
  Sender: FDA-Public Use
  Company Number: A-CH2006-12203

PATIENT
  Age: 59 Year
  Sex: Male

DRUGS (5)
  1. TRACLEER [Suspect]
     Dosage: 62.5 MG, BID, ORAL
     Route: 048
     Dates: start: 20060101
  2. TORASEMID (TORASEMIDE) [Concomitant]
  3. SPIRIVA [Concomitant]
  4. ISO-MACK-SLOW RELEASE (ISOSORBIDE DINITRATE) [Concomitant]
  5. VIANI (SALMETEROL XINAFOATE, FLUTICASONE PROPIONATE) [Concomitant]

REACTIONS (3)
  - ALANINE AMINOTRANSFERASE INCREASED [None]
  - ASPARTATE AMINOTRANSFERASE INCREASED [None]
  - GAMMA-GLUTAMYLTRANSFERASE INCREASED [None]
